FAERS Safety Report 8166616-4 (Version None)
Quarter: 2012Q1

REPORT INFORMATION
  Report Type: 
  Country: None (occurrence: None)
  Receive Date: 20120223
  Receipt Date: 20120223
  Transmission Date: 20120608
  Serious: Yes (Other)
  Sender: FDA-Public Use
  Company Number: None

PATIENT
  Age: 60 Year
  Sex: Male
  Weight: 78.5 kg

DRUGS (5)
  1. ERBITUX [Suspect]
     Indication: COLON CANCER
     Dosage: 760MG IV-OVER2HR
     Route: 042
     Dates: start: 20110920
  2. ERBITUX [Suspect]
  3. ZOFRAN [Concomitant]
  4. DEXAMETHASONE [Concomitant]
  5. NORMAL SALINE INFUSION [Concomitant]

REACTIONS (2)
  - RASH [None]
  - PRURITUS [None]
